FAERS Safety Report 15322192 (Version 2)
Quarter: 2018Q4

REPORT INFORMATION
  Report Type: Spontaneous
  Country: FR (occurrence: FR)
  Receive Date: 20180827
  Receipt Date: 20181016
  Transmission Date: 20190204
  Serious: Yes (Hospitalization)
  Sender: FDA-Public Use
  Company Number: FR-PFIZER INC-2018337419

PATIENT
  Age: 67 Year
  Sex: Male
  Weight: 57 kg

DRUGS (6)
  1. KARDEGIC [Concomitant]
     Active Substance: ASPIRIN DL-LYSINE
     Dosage: 160 MG, UNK
  2. PERINDOPRIL [Suspect]
     Active Substance: PERINDOPRIL
     Indication: ISCHAEMIC STROKE
     Dosage: 4 MG, 1X/DAY
     Route: 048
     Dates: start: 20180525, end: 20180718
  3. LANSOYL [Concomitant]
     Active Substance: MINERAL OIL
     Dosage: UNK
  4. EZETIMIBE. [Concomitant]
     Active Substance: EZETIMIBE
     Dosage: UNK
  5. IZALGI [Concomitant]
     Active Substance: ACETAMINOPHEN\OPIUM
     Dosage: 500 MG, UNK (500 MG/25 MG)
  6. AMLODIPINE [Suspect]
     Active Substance: AMLODIPINE BESYLATE
     Indication: ISCHAEMIC STROKE
     Dosage: 5 MG, 1X/DAY
     Route: 048
     Dates: start: 20180525, end: 20180718

REACTIONS (3)
  - Product use in unapproved indication [Unknown]
  - Malaise [Recovered/Resolved]
  - Polyuria [Unknown]

NARRATIVE: CASE EVENT DATE: 20180525
